FAERS Safety Report 8591240-9 (Version None)
Quarter: 2012Q3

REPORT INFORMATION
  Report Type: 
  Country: None (occurrence: None)
  Receive Date: 20120813
  Receipt Date: 20100609
  Transmission Date: 20120928
  Serious: Yes (Other)
  Sender: FDA-Public Use
  Company Number: PHHY2010CA37738

PATIENT
  Sex: Female

DRUGS (5)
  1. SANDOSTATIN LAR [Suspect]
     Dosage: 30 MG ONCE A MONTH
     Route: 030
  2. SANDOSTATIN LAR [Suspect]
     Dosage: 30 MG EVERY 3 WEEKS
     Route: 030
  3. SANDOSTATIN LAR [Suspect]
     Indication: NEUROENDOCRINE TUMOUR
     Dosage: 30 MG EVERY 3 WEEKS
     Route: 030
     Dates: start: 20050326, end: 20061016
  4. SANDOSTATIN LAR [Suspect]
     Dosage: 60 MG, QMO
     Route: 030
     Dates: start: 20120628
  5. SANDOSTATIN LAR [Suspect]
     Dosage: 30 MG, EVERY 3 WEEKS
     Route: 030

REACTIONS (6)
  - NEOPLASM MALIGNANT [None]
  - INAPPROPRIATE SCHEDULE OF DRUG ADMINISTRATION [None]
  - COLORECTAL CANCER [None]
  - ADENOCARCINOMA [None]
  - METASTASES TO LIVER [None]
  - BLOOD GLUCOSE INCREASED [None]
